FAERS Safety Report 9427822 (Version 1)
Quarter: 2013Q3

REPORT INFORMATION
  Report Type: Report from Study
  Country: US (occurrence: US)
  Receive Date: 20130730
  Receipt Date: 20130730
  Transmission Date: 20140515
  Serious: No
  Sender: FDA-Public Use
  Company Number: US-ABBOTT-12P-163-0990813-00

PATIENT
  Age: 81 Year
  Sex: Female

DRUGS (12)
  1. NIASPAN (COATED) [Suspect]
     Indication: PRODUCT USED FOR UNKNOWN INDICATION
     Dosage: AFTER DINNER
     Route: 048
     Dates: start: 20120915
  2. NIASPAN (COATED) [Suspect]
     Dosage: COMPLETED THE 500MG SAMPLES AND HAS TAKEN FOR 3 DAYS OF THE 1000MG DOSE
  3. HYDROCODONE/ACETAMINOPHEN [Concomitant]
     Indication: BACK PAIN
     Dosage: ? MG EVERY FOUR TO SIX HOURS, NORMALLY TAKES ABOUT ONE A DAY
  4. ASA [Concomitant]
     Indication: PRODUCT USED FOR UNKNOWN INDICATION
     Dosage: EVERY DAY
     Route: 048
  5. MIRAPEX [Concomitant]
     Indication: PRODUCT USED FOR UNKNOWN INDICATION
  6. LOSARTAN [Concomitant]
     Indication: PRODUCT USED FOR UNKNOWN INDICATION
  7. GABAPENTIN [Concomitant]
     Indication: PRODUCT USED FOR UNKNOWN INDICATION
  8. FLUOXETINE [Concomitant]
     Indication: PRODUCT USED FOR UNKNOWN INDICATION
  9. ATENOLOL [Concomitant]
     Indication: PRODUCT USED FOR UNKNOWN INDICATION
  10. VIT D [Concomitant]
     Indication: PRODUCT USED FOR UNKNOWN INDICATION
  11. FISH OIL [Concomitant]
     Indication: PRODUCT USED FOR UNKNOWN INDICATION
  12. TRAZADONE [Concomitant]
     Indication: PRODUCT USED FOR UNKNOWN INDICATION
     Dosage: ? MG, TAKEN FOR 1ST TIME BOUT ONE HOUR AFTER TAKING FIRST DOSE OF NIASPAN
     Route: 048
     Dates: start: 20121002

REACTIONS (7)
  - Coordination abnormal [Recovered/Resolved]
  - Gait disturbance [Recovered/Resolved]
  - Sensory disturbance [Recovered/Resolved]
  - Urinary incontinence [Recovered/Resolved]
  - Facial pain [Unknown]
  - Pain in jaw [Unknown]
  - Neck pain [Unknown]
